FAERS Safety Report 5874989-8 (Version None)
Quarter: 2008Q3

REPORT INFORMATION
  Report Type: 
  Country: None (occurrence: None)
  Receive Date: 20080909
  Receipt Date: 20080829
  Transmission Date: 20090109
  Serious: Yes (Death, Hospitalization)
  Sender: FDA-Public Use
  Company Number: US-AVENTIS-200818377GDDC

PATIENT
  Age: 80 Year
  Sex: Male

DRUGS (4)
  1. TAXOTERE [Suspect]
     Route: 042
     Dates: start: 20070530, end: 20070607
  2. OXALIPLATIN [Suspect]
     Route: 042
     Dates: start: 20070530, end: 20070607
  3. FLOXURIDINE [Suspect]
     Route: 042
     Dates: start: 20070530, end: 20070607
  4. LEUCOVORIN CALCIUM [Suspect]
     Route: 042
     Dates: start: 20070530, end: 20070607

REACTIONS (2)
  - FEBRILE NEUTROPENIA [None]
  - OESOPHAGEAL PERFORATION [None]
